FAERS Safety Report 8159250-3 (Version None)
Quarter: 2012Q1

REPORT INFORMATION
  Report Type: 
  Country: None (occurrence: None)
  Receive Date: 20120223
  Receipt Date: 20120215
  Transmission Date: 20120608
  Serious: Yes (Hospitalization)
  Sender: FDA-Public Use
  Company Number: US-SHIRE-ALL1-2012-00913

PATIENT
  Age: 19 Year
  Sex: Female

DRUGS (3)
  1. VYVANSE [Suspect]
     Dosage: 30 MG, 1X/DAY:QD
     Route: 048
     Dates: start: 20110501
  2. VYVANSE [Suspect]
     Indication: PRODUCT USED FOR UNKNOWN INDICATION
     Dosage: 120 MG, 1X/DAY:QD
     Route: 048
  3. VYVANSE [Suspect]
     Dosage: UNK MG, INCREASE UP TO 4-30 MG CAPSULES DAILY, 1X/DAY:QD
     Route: 048

REACTIONS (2)
  - DRUG DETOXIFICATION [None]
  - OVERDOSE [None]
